FAERS Safety Report 8244803-4 (Version None)
Quarter: 2012Q1

REPORT INFORMATION
  Report Type: 
  Country: None (occurrence: None)
  Receive Date: 20120329
  Receipt Date: 20110523
  Transmission Date: 20120608
  Serious: No
  Sender: FDA-Public Use
  Company Number: US-MYLANLABS-2011S1008445

PATIENT
  Age: 51 Year
  Sex: Male

DRUGS (4)
  1. FENTANYL-100 [Suspect]
     Indication: NECROSIS OF ARTERY
     Dosage: Q72HOURS
     Route: 062
     Dates: start: 20110301
  2. SKELAXIN [Concomitant]
     Route: 048
  3. TRAMADOL [Concomitant]
     Route: 048
  4. FENTANYL-100 [Suspect]
     Indication: ARTHRALGIA
     Dosage: Q72HOURS
     Route: 062
     Dates: start: 20110301

REACTIONS (3)
  - DRUG EFFECT DECREASED [None]
  - WITHDRAWAL SYNDROME [None]
  - ARTHRALGIA [None]
